FAERS Safety Report 6816237-8 (Version None)
Quarter: 2010Q3

REPORT INFORMATION
  Report Type: 
  Country: None (occurrence: None)
  Receive Date: 20100702
  Receipt Date: 20100702
  Transmission Date: 20110219
  Serious: Yes (Hospitalization)
  Sender: FDA-Public Use
  Company Number: None

PATIENT
  Sex: Female
  Weight: 61.1 kg

DRUGS (3)
  1. DEXAMETHASONE [Suspect]
     Dosage: 17 MG
  2. DOXORUBICIN HYDROCHLORIDE [Suspect]
     Dosage: 43 MG
  3. METHOTREXATE [Suspect]
     Dosage: 15 MG

REACTIONS (4)
  - BACTERIAL INFECTION [None]
  - BLOOD CULTURE POSITIVE [None]
  - DEVICE RELATED INFECTION [None]
  - UPPER RESPIRATORY TRACT INFECTION [None]
